FAERS Safety Report 12991652 (Version 1)
Quarter: 2016Q4

REPORT INFORMATION
  Report Type: Report from Study
  Country: BR (occurrence: BR)
  Receive Date: 20161201
  Receipt Date: 20161201
  Transmission Date: 20170207
  Serious: Yes (Death, Other)
  Sender: FDA-Public Use
  Company Number: PHHY2016BR164966

PATIENT
  Age: 82 Year
  Sex: Male

DRUGS (1)
  1. EXELON PATCH [Suspect]
     Active Substance: RIVASTIGMINE
     Indication: COORDINATION ABNORMAL
     Dosage: UNK
     Route: 062

REACTIONS (4)
  - Renal failure [Unknown]
  - Product use issue [Unknown]
  - Death [Fatal]
  - Aspiration [Unknown]
